FAERS Safety Report 20255507 (Version 1)
Quarter: 2021Q4

REPORT INFORMATION
  Report Type: Spontaneous
  Country: DE (occurrence: DE)
  Receive Date: 20211230
  Receipt Date: 20211230
  Transmission Date: 20220303
  Serious: Yes (Hospitalization)
  Sender: FDA-Public Use
  Company Number: DE-ADRED-07399-01

PATIENT
  Age: 86 Year
  Sex: Male

DRUGS (9)
  1. TORSEMIDE [Suspect]
     Active Substance: TORSEMIDE
     Dosage: 20 MILLIGRAM DAILY; 10 MG, 1-1-0-0
     Route: 048
  2. APIXABAN [Suspect]
     Active Substance: APIXABAN
     Dosage: 10 MILLIGRAM DAILY; 5 MG, 1-0-1-0
     Route: 048
  3. METOPROLOL [Concomitant]
     Active Substance: METOPROLOL
     Dosage: .5 DOSAGE FORMS DAILY; 50 MG, 0.5-0-0-0
     Route: 048
  4. ATORVASTATIN [Concomitant]
     Active Substance: ATORVASTATIN
     Dosage: 40 MILLIGRAM DAILY; 40 MG, 0-0-1-0
     Route: 048
  5. ZOLPIDEM [Concomitant]
     Active Substance: ZOLPIDEM TARTRATE
     Dosage: 10 MG, IF NECESSARY
     Route: 048
  6. MOXONIDINE [Concomitant]
     Active Substance: MOXONIDINE
     Dosage: .3 MILLIGRAM DAILY; 0.3 MG, 0-1-0-0,1A PHARMA
     Route: 048
  7. fluor-vigantol [Concomitant]
     Dosage: 1000 IU (INTERNATIONAL UNIT) DAILY; 1000 IE, 1-0-0-0,
     Route: 048
  8. PANTOPRAZOLE SODIUM [Concomitant]
     Active Substance: PANTOPRAZOLE SODIUM
     Dosage: 40 MILLIGRAM DAILY; 40 MG, 1-0-0-0
     Route: 048
  9. CANDESARTAN [Concomitant]
     Active Substance: CANDESARTAN
     Dosage: 32 MILLIGRAM DAILY; 16 MG, 1-0-1-0
     Route: 048

REACTIONS (6)
  - Product prescribing error [Unknown]
  - Musculoskeletal pain [Unknown]
  - Pain in extremity [Unknown]
  - Peripheral swelling [Unknown]
  - Pain [Unknown]
  - Medication error [Unknown]
